FAERS Safety Report 21978995 (Version 1)
Quarter: 2023Q1

REPORT INFORMATION
  Report Type: Spontaneous
  Country: CH (occurrence: CH)
  Receive Date: 20230210
  Receipt Date: 20230210
  Transmission Date: 20230418
  Serious: Yes (Other)
  Sender: FDA-Public Use
  Company Number: None

PATIENT
  Sex: Male

DRUGS (1)
  1. KEYTRUDA [Suspect]
     Active Substance: PEMBROLIZUMAB
     Dosage: 1 DOSAGE FORM (4 IN TOTAL)
     Dates: start: 20220701, end: 20220908

REACTIONS (2)
  - Immune-mediated endocrinopathy [Recovering/Resolving]
  - Hypophysitis [Recovering/Resolving]
